FAERS Safety Report 18045815 (Version 1)
Quarter: 2020Q3

REPORT INFORMATION
  Report Type: Spontaneous
  Country: US (occurrence: US)
  Receive Date: 20200720
  Receipt Date: 20200720
  Transmission Date: 20201103
  Serious: No
  Sender: FDA-Public Use
  Company Number: US-ASTRAZENECA-2020SE84504

PATIENT
  Age: 82 Year
  Sex: Female
  Weight: 70.8 kg

DRUGS (3)
  1. FASLODEX [Suspect]
     Active Substance: FULVESTRANT
     Indication: BREAST CANCER METASTATIC
     Dosage: MUSCLE OF BOTH BUTTOCKS ONCE MONTHLY
     Route: 030
  2. LIPITOR [Concomitant]
     Active Substance: ATORVASTATIN CALCIUM
     Indication: BLOOD CHOLESTEROL ABNORMAL
     Dosage: 10MG, 1 TABLET BY MOUTH DAILY
  3. IBRANCE [Suspect]
     Active Substance: PALBOCICLIB
     Dosage: FOR TWO WEEK
     Route: 048

REACTIONS (5)
  - Joint swelling [Recovering/Resolving]
  - Body height decreased [Unknown]
  - Injection site pain [Not Recovered/Not Resolved]
  - Injection site mass [Not Recovered/Not Resolved]
  - Alopecia [Not Recovered/Not Resolved]

NARRATIVE: CASE EVENT DATE: 2019
